FAERS Safety Report 9324312 (Version 1)
Quarter: 2013Q2

REPORT INFORMATION
  Report Type: Spontaneous
  Country: US (occurrence: US)
  Receive Date: 20130603
  Receipt Date: 20130603
  Transmission Date: 20140414
  Serious: Yes (Other)
  Sender: FDA-Public Use
  Company Number: US-PFIZER INC-2013166538

PATIENT
  Sex: Male

DRUGS (1)
  1. INFANT ADVIL CONCENTRATED DROPS [Suspect]
     Dosage: UNK
     Route: 048
     Dates: start: 20130512

REACTIONS (1)
  - Haemoptysis [Unknown]
